FAERS Safety Report 9621220 (Version 2)
Quarter: 2013Q4

REPORT INFORMATION
  Report Type: Other
  Country: US (occurrence: US)
  Receive Date: 20131015
  Receipt Date: 20131105
  Transmission Date: 20140711
  Serious: No
  Sender: FDA-Public Use
  Company Number: PHEH2013US021048

PATIENT
  Sex: Female

DRUGS (5)
  1. NEORAL [Suspect]
     Indication: AUTOIMMUNE DISORDER
  2. NEORAL [Suspect]
     Indication: EYE INFLAMMATION
  3. NEORAL [Suspect]
     Indication: OFF LABEL USE
  4. PREDNISONE [Suspect]
  5. CELLCEPT [Suspect]

REACTIONS (1)
  - No adverse event [Unknown]
